FAERS Safety Report 22308301 (Version 1)
Quarter: 2023Q2

REPORT INFORMATION
  Report Type: Spontaneous
  Country: CA (occurrence: CA)
  Receive Date: 20230511
  Receipt Date: 20230511
  Transmission Date: 20230722
  Serious: Yes (Hospitalization, Congenital Anomaly, Other)
  Sender: FDA-Public Use
  Company Number: CA-002147023-NVSC2023CA104959

PATIENT
  Sex: Female

DRUGS (2)
  1. QUETIAPINE [Suspect]
     Active Substance: QUETIAPINE
     Indication: Foetal exposure during pregnancy
     Dosage: UNK, UNKNOWN
     Route: 064
  2. FLUOXETINE [Suspect]
     Active Substance: FLUOXETINE HYDROCHLORIDE
     Indication: Foetal exposure during pregnancy
     Dosage: UNK, UNKNOWN
     Route: 064

REACTIONS (6)
  - Neurodevelopmental disorder [Unknown]
  - Developmental hip dysplasia [Unknown]
  - Low birth weight baby [Unknown]
  - Hyperbilirubinaemia [Recovered/Resolved]
  - Hypoglycaemia [Recovered/Resolved]
  - Foetal exposure during pregnancy [Unknown]
